FAERS Safety Report 6278129-5 (Version None)
Quarter: 2009Q3

REPORT INFORMATION
  Report Type: 
  Country: None (occurrence: None)
  Receive Date: 20090722
  Receipt Date: 20071115
  Transmission Date: 20100115
  Serious: Yes (Hospitalization, Other)
  Sender: FDA-Public Use
  Company Number: US-ASTRAZENECA-2007UW14861

PATIENT
  Age: 20089 Day
  Sex: Female
  Weight: 81.6 kg

DRUGS (19)
  1. SEROQUEL [Suspect]
     Indication: SLEEP DISORDER
     Route: 048
     Dates: start: 19980101, end: 20060922
  2. SEROQUEL [Suspect]
     Dosage: 25-400 MG
     Route: 048
  3. PROZAC [Concomitant]
  4. ZYPREXA ZYDIS [Concomitant]
  5. ESKALITH CR [Concomitant]
  6. IMODIUM [Concomitant]
  7. GLUCOPHAGE [Concomitant]
  8. VASOTEC [Concomitant]
  9. LANTUS [Concomitant]
  10. ACTOS [Concomitant]
  11. LASIX [Concomitant]
  12. DEPAKOTE ER [Concomitant]
  13. KLONOPIN [Concomitant]
  14. TYLENOL (CAPLET) [Concomitant]
  15. ATIVAN [Concomitant]
  16. LEXAPRO [Concomitant]
  17. WELLBUTRIN [Concomitant]
  18. REGLAN [Concomitant]
  19. ZOCOR [Concomitant]

REACTIONS (3)
  - DIABETES MELLITUS [None]
  - DIABETIC KETOACIDOSIS [None]
  - PANCREATITIS ACUTE [None]
